FAERS Safety Report 15869017 (Version 1)
Quarter: 2019Q1

REPORT INFORMATION
  Report Type: Spontaneous
  Country: US (occurrence: US)
  Receive Date: 20190125
  Receipt Date: 20190125
  Transmission Date: 20190417
  Serious: Yes (Hospitalization, Disabling)
  Sender: FDA-Public Use
  Company Number: None

PATIENT
  Age: 42 Year
  Sex: Female
  Weight: 95.85 kg

DRUGS (6)
  1. LOSARTON [Concomitant]
  2. ASPIRIN. [Concomitant]
     Active Substance: ASPIRIN
  3. GLIPISIDE [Concomitant]
     Active Substance: GLIPIZIDE
  4. PETFORMIN [Concomitant]
  5. LUPRON [Suspect]
     Active Substance: LEUPROLIDE ACETATE
     Indication: MENORRHAGIA
     Dosage: ?          OTHER FREQUENCY:QUARTERLY;OTHER ROUTE:INJECTION?
  6. METOPROLOL. [Concomitant]
     Active Substance: METOPROLOL

REACTIONS (32)
  - Arthralgia [None]
  - Anxiety [None]
  - Lethargy [None]
  - Night blindness [None]
  - Jaw disorder [None]
  - Mood swings [None]
  - Vision blurred [None]
  - Learning disability [None]
  - Paraesthesia [None]
  - Depression [None]
  - Amnesia [None]
  - Disturbance in attention [None]
  - Rash [None]
  - Urinary tract infection [None]
  - Lung infection [None]
  - Immune system disorder [None]
  - Cognitive disorder [None]
  - General physical health deterioration [None]
  - Muscle strain [None]
  - Feeling abnormal [None]
  - Asthenia [None]
  - Alopecia [None]
  - Muscular weakness [None]
  - Injury [None]
  - Weight increased [None]
  - Ear congestion [None]
  - Skin discolouration [None]
  - Tooth disorder [None]
  - Metrorrhagia [None]
  - Muscle spasms [None]
  - Blood glucose fluctuation [None]
  - Neoplasm skin [None]

NARRATIVE: CASE EVENT DATE: 20160219
